FAERS Safety Report 10575184 (Version 1)
Quarter: 2014Q4

REPORT INFORMATION
  Report Type: Spontaneous
  Country: US (occurrence: US)
  Receive Date: 20141111
  Receipt Date: 20141111
  Transmission Date: 20150529
  Serious: Yes (Hospitalization)
  Sender: FDA-Public Use
  Company Number: US-BRISTOL-MYERS SQUIBB COMPANY-21555842

PATIENT
  Age: 82 Year
  Sex: Female
  Weight: 68.03 kg

DRUGS (3)
  1. CALCIUM [Concomitant]
     Active Substance: CALCIUM
  2. WARFARIN SODIUM. [Suspect]
     Active Substance: WARFARIN SODIUM
  3. OCUVITE [Concomitant]
     Active Substance: VITAMINS

REACTIONS (1)
  - Pneumonia [Unknown]
